FAERS Safety Report 4665153-9 (Version None)
Quarter: 2005Q2

REPORT INFORMATION
  Report Type: 
  Country: None (occurrence: None)
  Receive Date: 20050517
  Receipt Date: 20050325
  Transmission Date: 20051028
  Serious: Yes (Hospitalization)
  Sender: FDA-Public Use
  Company Number: 800370

PATIENT
  Age: 47 Year
  Sex: 0

DRUGS (9)
  1. EXTRANEAL [Suspect]
     Indication: RENAL FAILURE CHRONIC
     Dosage: 2000 ML; INTRAPERITONEAL
     Route: 033
     Dates: start: 20040726
  2. DIANEAL [Concomitant]
  3. VALSARTAN [Concomitant]
  4. AMOBAN [Concomitant]
  5. NIFEDIPINE [Concomitant]
  6. ROCALTROL [Concomitant]
  7. RENAGEL [Concomitant]
  8. CALCIUM CARBONATE [Concomitant]
  9. CARDENALIN [Concomitant]

REACTIONS (1)
  - PERITONITIS BACTERIAL [None]
